FAERS Safety Report 7087865-2 (Version None)
Quarter: 2010Q4

REPORT INFORMATION
  Report Type: 
  Country: None (occurrence: None)
  Receive Date: 20101108
  Receipt Date: 20101026
  Transmission Date: 20110411
  Serious: Yes (Hospitalization)
  Sender: FDA-Public Use
  Company Number: JP-JNJFOC-20101100315

PATIENT
  Age: 11 Year
  Sex: Male

DRUGS (44)
  1. FENTANYL CITRATE [Suspect]
     Indication: ILL-DEFINED DISORDER
     Route: 041
  2. RISPERIDONE [Suspect]
     Indication: ILL-DEFINED DISORDER
     Route: 048
  3. ULTIVA [Suspect]
     Indication: ILL-DEFINED DISORDER
     Route: 042
  4. HYDROXYZINE [Suspect]
     Indication: ILL-DEFINED DISORDER
     Route: 042
  5. GASTER [Suspect]
     Indication: ILL-DEFINED DISORDER
     Route: 048
  6. GASTER [Suspect]
     Route: 041
  7. MIDAZOLAM HCL [Suspect]
     Indication: ILL-DEFINED DISORDER
     Route: 041
  8. PHENOBARBITAL [Suspect]
     Indication: ILL-DEFINED DISORDER
     Route: 048
  9. CERCINE [Suspect]
     Indication: ILL-DEFINED DISORDER
     Route: 048
  10. CERCINE [Suspect]
     Route: 048
  11. AMPICILLIN [Suspect]
     Indication: ILL-DEFINED DISORDER
     Route: 048
  12. TAKEPRON [Suspect]
     Indication: ILL-DEFINED DISORDER
     Route: 048
  13. ROCEPHIN [Suspect]
     Indication: INFECTION
     Route: 042
  14. LACTIC ACID [Suspect]
     Indication: ILL-DEFINED DISORDER
     Route: 048
  15. CALONAL [Suspect]
     Indication: PYREXIA
     Route: 048
  16. CLINDAMYCIN [Suspect]
     Indication: ILL-DEFINED DISORDER
     Route: 042
  17. PIPERACILLIN SODIUM [Suspect]
     Indication: ILL-DEFINED DISORDER
     Route: 042
  18. RINGERS SOLUTION [Suspect]
     Indication: ILL-DEFINED DISORDER
     Route: 048
  19. RINGERS SOLUTION [Suspect]
     Route: 048
  20. MORPHINE HYDROCHLORIDE [Suspect]
     Indication: ILL-DEFINED DISORDER
     Route: 048
  21. LASIX [Suspect]
     Indication: ILL-DEFINED DISORDER
     Route: 048
  22. ALDACTONE [Suspect]
     Indication: ILL-DEFINED DISORDER
     Route: 048
  23. DEPAS [Suspect]
     Indication: ILL-DEFINED DISORDER
     Route: 048
  24. TRICLORYL [Suspect]
     Indication: ILL-DEFINED DISORDER
     Route: 048
  25. LAXOBERON [Suspect]
     Indication: ILL-DEFINED DISORDER
     Route: 048
  26. OMEPRAZOLE SODIUM [Suspect]
     Indication: ILL-DEFINED DISORDER
     Route: 042
  27. HEPARIN SODIUM [Suspect]
     Indication: ILL-DEFINED DISORDER
     Route: 042
  28. HEPARIN SODIUM [Suspect]
     Route: 041
  29. GLYCEOL [Suspect]
     Indication: ILL-DEFINED DISORDER
     Route: 041
  30. DEXAMETHASONE SODIUM PHOSPHATE [Suspect]
     Indication: ILL-DEFINED DISORDER
     Route: 041
  31. ATROPINE SULPHATE [Suspect]
     Indication: ILL-DEFINED DISORDER
     Route: 042
  32. EPINEPHRINE [Suspect]
     Indication: ILL-DEFINED DISORDER
     Route: 042
  33. CALCICOL [Suspect]
     Indication: ILL-DEFINED DISORDER
     Route: 041
  34. CEFAZOLIN SODIUM [Suspect]
     Indication: ILL-DEFINED DISORDER
     Route: 041
  35. NICARDIPINE HYDROCHLORIDE [Suspect]
     Indication: ILL-DEFINED DISORDER
     Route: 041
  36. DEXMEDETOMIDINE HYDROCHLORIDE [Suspect]
     Indication: ILL-DEFINED DISORDER
     Route: 041
  37. ROCURONIUM BROMIDE [Suspect]
     Indication: ILL-DEFINED DISORDER
     Route: 042
  38. XYLOCAINE [Suspect]
     Indication: ILL-DEFINED DISORDER
     Route: 042
  39. PANTHENOL [Suspect]
     Indication: ILL-DEFINED DISORDER
     Route: 042
  40. ANHIBA [Suspect]
     Indication: ILL-DEFINED DISORDER
     Route: 054
  41. FLURBIPROFEN [Suspect]
     Indication: ILL-DEFINED DISORDER
     Route: 042
  42. SODIUM HYALURONATE [Suspect]
     Indication: ILL-DEFINED DISORDER
     Route: 065
  43. GLYCERINE [Suspect]
     Indication: CONSTIPATION
     Route: 054
  44. OFLOXACIN [Concomitant]
     Route: 065

REACTIONS (1)
  - DRUG RASH WITH EOSINOPHILIA AND SYSTEMIC SYMPTOMS [None]
